FAERS Safety Report 7370174-1 (Version None)
Quarter: 2011Q1

REPORT INFORMATION
  Report Type: 
  Country: None (occurrence: None)
  Receive Date: 20110323
  Receipt Date: 20100212
  Transmission Date: 20110831
  Serious: Yes (Other)
  Sender: FDA-Public Use
  Company Number: US-ASTRAZENECA-2010SE07242

PATIENT
  Sex: Female

DRUGS (4)
  1. ZESTRIL [Suspect]
     Route: 048
  2. EZETIMIBE (MSD) [Concomitant]
  3. ZESTRIL [Suspect]
     Route: 048
  4. ZESTRIL [Suspect]
     Route: 048

REACTIONS (3)
  - DIZZINESS [None]
  - RENAL FAILURE [None]
  - HYPOTENSION [None]
